FAERS Safety Report 7759620-9 (Version None)
Quarter: 2011Q3

REPORT INFORMATION
  Report Type: 
  Country: None (occurrence: None)
  Receive Date: 20110919
  Receipt Date: 20110915
  Transmission Date: 20111222
  Serious: Yes (Hospitalization)
  Sender: FDA-Public Use
  Company Number: CL-ROCHE-802549

PATIENT
  Sex: Female
  Weight: 42 kg

DRUGS (1)
  1. CAPECITABINE [Suspect]
     Indication: GASTRIC CANCER
     Dosage: 1300 MG IN THE MORNING AND 1300 MG AT NIGHT
     Route: 048
     Dates: start: 20110616

REACTIONS (2)
  - SYNCOPE [None]
  - HAEMATEMESIS [None]
